FAERS Safety Report 25191432 (Version 1)
Quarter: 2025Q2

REPORT INFORMATION
  Report Type: Spontaneous
  Country: US (occurrence: None)
  Receive Date: 20250411
  Receipt Date: 20250411
  Transmission Date: 20250717
  Serious: No
  Sender: FDA-CTU
  Company Number: None

PATIENT
  Age: 77 Year
  Sex: Female

DRUGS (2)
  1. CALQUENCE [Suspect]
     Active Substance: ACALABRUTINIB
     Dosage: FREQUENCY : TWICE A DAY;?
     Route: 048
     Dates: start: 20250317, end: 20250407
  2. CALQUENCE [Concomitant]
     Active Substance: ACALABRUTINIB
     Dates: start: 20250317, end: 20250407

REACTIONS (4)
  - Eating disorder symptom [None]
  - Mastication disorder [None]
  - Dysphagia [None]
  - Pain [None]

NARRATIVE: CASE EVENT DATE: 20250317
